FAERS Safety Report 7603360-3 (Version None)
Quarter: 2011Q3

REPORT INFORMATION
  Report Type: 
  Country: None (occurrence: None)
  Receive Date: 20110712
  Receipt Date: 20110701
  Transmission Date: 20111222
  Serious: No
  Sender: FDA-Public Use
  Company Number: PHEH2009US00440

PATIENT
  Sex: Female

DRUGS (14)
  1. REGLAN [Concomitant]
     Dosage: UNK
  2. MULTI-VITAMIN [Concomitant]
     Dosage: UNK
  3. AMOXIL [Concomitant]
     Dosage: UNK
  4. LEXAPRO [Concomitant]
  5. ASPIRIN [Concomitant]
  6. SCOPOLAMINE [Concomitant]
     Dosage: UNK
  7. NITROGLYCERIN [Concomitant]
  8. FIBER [Concomitant]
     Dosage: UNK
  9. TASIGNA [Suspect]
     Indication: CHRONIC MYELOID LEUKAEMIA
     Dosage: 200 MG, BID
     Route: 048
     Dates: start: 20081101
  10. MAALOX [Concomitant]
     Dosage: UNK
  11. MELOXICAM [Concomitant]
  12. CALCIUM CARBONATE [Concomitant]
     Dosage: UNK
  13. NEURONTIN [Concomitant]
     Dosage: UNK
  14. ZOFRAN [Concomitant]
     Dosage: UNK

REACTIONS (6)
  - CONSTIPATION [None]
  - CHEST DISCOMFORT [None]
  - DYSPEPSIA [None]
  - NAUSEA [None]
  - DIARRHOEA [None]
  - GASTROINTESTINAL DISORDER [None]
